FAERS Safety Report 22219944 (Version 5)
Quarter: 2023Q2

REPORT INFORMATION
  Report Type: Spontaneous
  Country: CN (occurrence: CN)
  Receive Date: 20230417
  Receipt Date: 20230522
  Transmission Date: 20230722
  Serious: Yes (Death, Other)
  Sender: FDA-Public Use
  Company Number: CN-SANOFI-01571366

PATIENT
  Age: 63 Year
  Sex: Male

DRUGS (6)
  1. ELOXATIN [Suspect]
     Active Substance: OXALIPLATIN
     Indication: Gastrointestinal cancer metastatic
     Dosage: UNK MG
     Route: 041
     Dates: end: 20230409
  2. FLUOROURACIL [Concomitant]
     Active Substance: FLUOROURACIL
     Indication: Gastrointestinal cancer metastatic
  3. LEVOLEUCOVORIN CALCIUM [Concomitant]
     Active Substance: LEVOLEUCOVORIN CALCIUM
     Indication: Gastrointestinal cancer metastatic
  4. TROPISETRON [Concomitant]
     Active Substance: TROPISETRON
     Indication: Antiemetic supportive care
  5. TROPISETRON [Concomitant]
     Active Substance: TROPISETRON
  6. ROXATIDINE [Concomitant]
     Active Substance: ROXATIDINE
     Indication: Gastrointestinal disorder prophylaxis

REACTIONS (5)
  - Anaphylactic shock [Fatal]
  - Loss of consciousness [Fatal]
  - Unresponsive to stimuli [Fatal]
  - Foaming at mouth [Fatal]
  - Mydriasis [Fatal]

NARRATIVE: CASE EVENT DATE: 20230409
